FAERS Safety Report 19229944 (Version 1)
Quarter: 2021Q2

REPORT INFORMATION
  Report Type: Report from Study
  Country: None (occurrence: US)
  Receive Date: 20210506
  Receipt Date: 20210506
  Transmission Date: 20210717
  Serious: Yes (Disabling)
  Sender: FDA-Public Use
  Company Number: US-ABBVIE-21K-163-3894131-00

PATIENT
  Sex: Female

DRUGS (1)
  1. SKYRIZI [Suspect]
     Active Substance: RISANKIZUMAB-RZAA
     Indication: PSORIASIS
     Route: 058

REACTIONS (11)
  - Disability [Unknown]
  - Pain [Unknown]
  - Gait inability [Unknown]
  - Asthma [Unknown]
  - Arthropathy [Unknown]
  - Bone disorder [Unknown]
  - Gait disturbance [Unknown]
  - Dysstasia [Unknown]
  - Device difficult to use [Unknown]
  - Respiratory disorder [Unknown]
  - Memory impairment [Unknown]
